FAERS Safety Report 8488963-9 (Version None)
Quarter: 2012Q3

REPORT INFORMATION
  Report Type: 
  Country: None (occurrence: None)
  Receive Date: 20120705
  Receipt Date: 20120702
  Transmission Date: 20120928
  Serious: Yes (Other)
  Sender: FDA-Public Use
  Company Number: US-PFIZER INC-2012144127

PATIENT
  Sex: Female
  Weight: 63.492 kg

DRUGS (2)
  1. AROMASIN [Suspect]
     Indication: BREAST CANCER IN SITU
     Dosage: 25 MG, DAILY
     Route: 048
     Dates: start: 20111230, end: 20120328
  2. ZOLOFT [Concomitant]
     Indication: DEPRESSION
     Dosage: 25 MG/DAY

REACTIONS (3)
  - ALANINE AMINOTRANSFERASE INCREASED [None]
  - DIARRHOEA [None]
  - ASPARTATE AMINOTRANSFERASE INCREASED [None]
